FAERS Safety Report 8803918 (Version 2)
Quarter: 2012Q4

REPORT INFORMATION
  Report Type: 
  Country: CA (occurrence: CA)
  Receive Date: 20120923
  Receipt Date: 20121107
  Transmission Date: 20130627
  Serious: Yes (Other)
  Sender: FDA-Public Use
  Company Number: PHHY2008CA044285

PATIENT

DRUGS (1)
  1. SANDOSTATIN LAR [Suspect]
     Dates: start: 20071112

REACTIONS (3)
  - Blood pressure decreased [Unknown]
  - Heart rate decreased [Unknown]
  - Asthenia [Unknown]
